FAERS Safety Report 8327544-4 (Version None)
Quarter: 2012Q2

REPORT INFORMATION
  Report Type: 
  Country: None (occurrence: None)
  Receive Date: 20120502
  Receipt Date: 20120426
  Transmission Date: 20120825
  Serious: No
  Sender: FDA-Public Use
  Company Number: US-BAYER-2012-041462

PATIENT
  Age: 60 Year
  Sex: Female
  Weight: 52.154 kg

DRUGS (21)
  1. PEPCID [Concomitant]
     Dosage: 20 MG, UNK
  2. CLINDAMYCIN [Concomitant]
  3. IMITREX [Concomitant]
     Dosage: 25 MG, UNK
  4. NEURONTIN [Concomitant]
     Dosage: 600 MG, UNK
  5. BACLOFEN [Concomitant]
     Dosage: 10 MG, UNK
  6. PREVACID [Concomitant]
     Dosage: 15 MG, UNK
  7. MULTI-VITAMIN [Concomitant]
  8. VICODIN [Concomitant]
     Dosage: 5-500MG
  9. TRILIPIX [Concomitant]
     Dosage: 135 MG, UNK
  10. CLONAZEPAM [Concomitant]
     Dosage: 1 MG, UNK
  11. SINUS FORMUL DAYTIME [Concomitant]
  12. DETROL LA [Concomitant]
     Dosage: 4 MG, UNK
  13. BETASERON [Suspect]
     Dosage: 0.3 MG, QOD
     Route: 058
  14. ADDERALL 5 [Concomitant]
     Dosage: 10 MG, UNK
  15. FIBER [Concomitant]
     Dosage: 0.52 G, UNK
  16. VERAMYST [Concomitant]
     Dosage: 27.5 MCG/ML, UNK
  17. MYLANTA DOUBLE STRENGTH [Concomitant]
  18. CYMBALTA [Concomitant]
     Dosage: 200 MG, UNK
  19. AMANTADINE HCL [Concomitant]
     Dosage: 100 MG, UNK
  20. BIOTIN [Concomitant]
     Dosage: 5000
  21. CALCIUM D [Concomitant]

REACTIONS (2)
  - FATIGUE [None]
  - MIGRAINE [None]
